FAERS Safety Report 18967050 (Version 1)
Quarter: 2021Q1

REPORT INFORMATION
  Report Type: Report from Study
  Country: US (occurrence: US)
  Receive Date: 20210304
  Receipt Date: 20210304
  Transmission Date: 20210420
  Serious: Yes (Other)
  Sender: FDA-Public Use
  Company Number: US-JNJFOC-20210244097

PATIENT

DRUGS (3)
  1. SIMPONI [Suspect]
     Active Substance: GOLIMUMAB
     Indication: COLITIS ULCERATIVE
     Route: 058
  2. REMICADE [Suspect]
     Active Substance: INFLIXIMAB
     Indication: COLITIS ULCERATIVE
     Route: 042
  3. ADALIMUMAB [Suspect]
     Active Substance: ADALIMUMAB
     Indication: COLITIS ULCERATIVE
     Route: 065

REACTIONS (10)
  - Head and neck cancer [Unknown]
  - Respiratory tract infection [Unknown]
  - Lung neoplasm malignant [Unknown]
  - Herpes zoster [Unknown]
  - Hepatic enzyme abnormal [Unknown]
  - Lupus-like syndrome [Unknown]
  - Adenocarcinoma metastatic [Unknown]
  - Clostridium difficile infection [Unknown]
  - Infusion related reaction [Unknown]
  - Psoriasis [Unknown]
